FAERS Safety Report 5006854-2 (Version None)
Quarter: 2006Q2

REPORT INFORMATION
  Report Type: 
  Country: None (occurrence: None)
  Receive Date: 20060516
  Receipt Date: 20060503
  Transmission Date: 20061013
  Serious: Yes (Death, Other)
  Sender: FDA-Public Use
  Company Number: 153-20785-06050275

PATIENT
  Age: 59 Year
  Sex: Male

DRUGS (2)
  1. THALIDOMIDE (THALIDOMIDE) (CAPSULES) [Suspect]
     Indication: HEPATIC NEOPLASM MALIGNANT
     Dosage: 200 MG, QD, ORAL
     Route: 048
  2. 3D-CRT [Suspect]
     Indication: HEPATIC NEOPLASM MALIGNANT
     Dosage: 58.5 GY,

REACTIONS (2)
  - HEPATIC FAILURE [None]
  - HEPATOBILIARY DISEASE [None]
